FAERS Safety Report 6327057-5 (Version None)
Quarter: 2009Q3

REPORT INFORMATION
  Report Type: 
  Country: None (occurrence: None)
  Receive Date: 20090821
  Receipt Date: 20090810
  Transmission Date: 20100115
  Serious: Yes (Hospitalization)
  Sender: FDA-Public Use
  Company Number: ADR11842009

PATIENT
  Age: 46 Year
  Sex: Male

DRUGS (3)
  1. METFORMIN (MFR: UNKNOWN) [Suspect]
     Dosage: 56 G (OVERDOSE) ORAL
     Route: 048
  2. RAMIPRIL [Suspect]
     Dosage: 35 MG (OVERDOSE) ORAL
     Route: 048
  3. ALCOHOL [Concomitant]

REACTIONS (14)
  - ABDOMINAL PAIN LOWER [None]
  - APNOEA [None]
  - CARDIAC ARREST [None]
  - COMPARTMENT SYNDROME [None]
  - CONTINUOUS HAEMODIAFILTRATION [None]
  - INTENTIONAL OVERDOSE [None]
  - LACTIC ACIDOSIS [None]
  - LEG AMPUTATION [None]
  - OVERDOSE [None]
  - PARTIAL SEIZURES [None]
  - POST PROCEDURAL COMPLICATION [None]
  - RENAL IMPAIRMENT [None]
  - RHABDOMYOLYSIS [None]
  - VOMITING [None]
